FAERS Safety Report 14155639 (Version 2)
Quarter: 2017Q4

REPORT INFORMATION
  Report Type: Spontaneous
  Country: US (occurrence: US)
  Receive Date: 20171103
  Receipt Date: 20171222
  Transmission Date: 20180321
  Serious: Yes (Hospitalization)
  Sender: FDA-Public Use
  Company Number: US-ASTRAZENECA-2017SF11538

PATIENT
  Sex: Female
  Weight: 90.3 kg

DRUGS (3)
  1. BYDUREON [Suspect]
     Active Substance: EXENATIDE
     Indication: PROPHYLAXIS
     Route: 058
  2. TRESIBA [Concomitant]
     Active Substance: INSULIN DEGLUDEC
     Indication: BLOOD GLUCOSE INCREASED
     Dosage: 76 UNITS, DAILY
     Route: 058
     Dates: start: 2016
  3. BYDUREON [Suspect]
     Active Substance: EXENATIDE
     Indication: BLOOD GLUCOSE INCREASED
     Route: 058

REACTIONS (9)
  - Injection site discomfort [Unknown]
  - Injection site mass [Recovered/Resolved]
  - Injection site haemorrhage [Unknown]
  - Intentional product misuse [Recovered/Resolved]
  - Injection site pain [Unknown]
  - Injection site extravasation [Unknown]
  - Gangrene [Recovered/Resolved]
  - Injection site swelling [Recovered/Resolved]
  - Wrong technique in product usage process [Unknown]
